FAERS Safety Report 10190088 (Version 4)
Quarter: 2014Q4

REPORT INFORMATION
  Report Type: Report from Study
  Country: JP (occurrence: JP)
  Receive Date: 20140522
  Receipt Date: 20141127
  Transmission Date: 20150528
  Serious: Yes (Other)
  Sender: FDA-Public Use
  Company Number: PHHY2013JP101496

PATIENT
  Age: 52 Year
  Sex: Female
  Weight: 66 kg

DRUGS (16)
  1. PROTECADIN [Concomitant]
     Active Substance: LAFUTIDINE
     Indication: PROPHYLAXIS
     Dosage: 20 MG, QD
     Route: 048
     Dates: start: 20121211
  2. MUCOSTA [Concomitant]
     Active Substance: REBAMIPIDE
     Indication: PRODUCT USED FOR UNKNOWN INDICATION
     Dosage: 300 MG, QD
     Route: 048
     Dates: start: 20130307
  3. GASTER [Concomitant]
     Active Substance: FAMOTIDINE
     Indication: PROPHYLAXIS
     Dosage: 20 MG, QD
     Route: 048
     Dates: end: 20121210
  4. DEPAKENE [Concomitant]
     Active Substance: VALPROIC ACID
     Indication: MIGRAINE
     Dosage: 200 MG, QD
     Route: 048
  5. DORAL [Concomitant]
     Active Substance: QUAZEPAM
     Indication: INSOMNIA
     Dosage: 15 MG, QD
     Route: 048
     Dates: end: 20130321
  6. MYSLEE [Concomitant]
     Active Substance: ZOLPIDEM TARTRATE
     Indication: PRODUCT USED FOR UNKNOWN INDICATION
     Dosage: 5 MG, QD
     Route: 048
     Dates: end: 20130321
  7. UBRETID [Concomitant]
     Active Substance: DISTIGMINE BROMIDE
     Dosage: 5 MG, QD
     Route: 048
     Dates: start: 20120515, end: 20131122
  8. GILENYA [Suspect]
     Active Substance: FINGOLIMOD HYDROCHLORIDE
     Indication: MULTIPLE SCLEROSIS
     Dosage: 0.5 MG, QD
     Route: 048
     Dates: start: 20120409
  9. LOXONIN [Concomitant]
     Active Substance: LOXOPROFEN SODIUM
     Dosage: 180 MG, QD
     Route: 061
  10. CALONAL [Concomitant]
     Active Substance: ACETAMINOPHEN
     Indication: MIGRAINE
     Dosage: 400 MG, PRN
     Route: 048
     Dates: start: 20121211, end: 20130419
  11. UBRETID [Concomitant]
     Active Substance: DISTIGMINE BROMIDE
     Indication: MULTIPLE SCLEROSIS
     Dosage: 2.5 MG, QD
     Route: 048
     Dates: end: 20120514
  12. ZOMIG [Concomitant]
     Active Substance: ZOLMITRIPTAN
     Indication: MIGRAINE
     Dosage: 2.5 MG, QD
     Route: 048
     Dates: end: 20120709
  13. LOXONIN [Concomitant]
     Active Substance: LOXOPROFEN SODIUM
     Indication: BACK PAIN
     Dosage: 100 MG, QD
     Route: 061
     Dates: start: 20121002, end: 20121012
  14. SENNOSIDE [Concomitant]
     Active Substance: SENNOSIDES
     Indication: MULTIPLE SCLEROSIS
     Dosage: 48 MG, QD
     Route: 048
  15. AMERGE [Concomitant]
     Active Substance: NARATRIPTAN HYDROCHLORIDE
     Indication: PRODUCT USED FOR UNKNOWN INDICATION
     Dosage: 2.5 MG,/ DAY PRN
     Route: 048
     Dates: start: 20131122
  16. CRESTOR [Concomitant]
     Active Substance: ROSUVASTATIN CALCIUM
     Indication: HYPERLIPIDAEMIA
     Dosage: 2.5 MG, QD
     Route: 048
     Dates: start: 20120612

REACTIONS (10)
  - Blood pressure decreased [Recovered/Resolved]
  - Migraine [Recovering/Resolving]
  - Bladder cancer [Not Recovered/Not Resolved]
  - Insomnia [Not Recovered/Not Resolved]
  - Cystitis [Recovered/Resolved]
  - Haematuria [Not Recovered/Not Resolved]
  - Humerus fracture [Recovering/Resolving]
  - Dysuria [Recovering/Resolving]
  - White blood cell count decreased [Not Recovered/Not Resolved]
  - Gamma-glutamyltransferase increased [Not Recovered/Not Resolved]

NARRATIVE: CASE EVENT DATE: 20120409
